FAERS Safety Report 7588480-4 (Version None)
Quarter: 2011Q3

REPORT INFORMATION
  Report Type: 
  Country: None (occurrence: None)
  Receive Date: 20110705
  Receipt Date: 20110622
  Transmission Date: 20111222
  Serious: Yes (Hospitalization)
  Sender: FDA-Public Use
  Company Number: FR-PFIZER INC-2011143812

PATIENT
  Age: 92 Year
  Sex: Female

DRUGS (11)
  1. ASPIRIN [Suspect]
     Dosage: 75 MG, DAILY
     Route: 048
     Dates: end: 20110512
  2. ARICEPT [Concomitant]
  3. CORDARONE [Suspect]
     Indication: ATRIAL FIBRILLATION
     Dosage: 200 MG, DAILY
     Route: 048
     Dates: start: 20110401, end: 20110512
  4. CITALOPRAM HYDROBROMIDE [Suspect]
     Dosage: 20 MG, DAILY
     Route: 048
  5. SINGULAIR [Concomitant]
  6. PANTOPRAZOLE [Concomitant]
  7. SERETIDE [Concomitant]
  8. ARIXTRA [Suspect]
     Indication: ATRIAL FIBRILLATION
     Dosage: 7.5 MG, DAILY
     Route: 058
     Dates: start: 20110401, end: 20110512
  9. PERINDOPRIL ERBUMINE [Concomitant]
  10. DESLORATADINE [Concomitant]
  11. LASIX [Concomitant]

REACTIONS (2)
  - ANAEMIA [None]
  - HAEMATOMA [None]
